FAERS Safety Report 12549620 (Version 1)
Quarter: 2016Q3

REPORT INFORMATION
  Report Type: Spontaneous
  Country: US (occurrence: US)
  Receive Date: 20160712
  Receipt Date: 20160712
  Transmission Date: 20161109
  Serious: Yes (Other)
  Sender: FDA-Public Use
  Company Number: US-TEVA-675491USA

PATIENT
  Age: 35 Year
  Sex: Female

DRUGS (1)
  1. ZECUITY [Suspect]
     Active Substance: SUMATRIPTAN SUCCINATE
     Route: 062
     Dates: start: 201605

REACTIONS (7)
  - Application site paraesthesia [Unknown]
  - Application site dryness [Not Recovered/Not Resolved]
  - Application site scab [Not Recovered/Not Resolved]
  - Application site burn [Not Recovered/Not Resolved]
  - Application site warmth [Unknown]
  - Application site irritation [Not Recovered/Not Resolved]
  - Application site erythema [Unknown]

NARRATIVE: CASE EVENT DATE: 201605
